FAERS Safety Report 23320396 (Version 1)
Quarter: 2023Q4

REPORT INFORMATION
  Report Type: Spontaneous
  Country: US (occurrence: US)
  Receive Date: 20231220
  Receipt Date: 20231220
  Transmission Date: 20240110
  Serious: No
  Sender: FDA-Public Use
  Company Number: US-PFIZER INC-202300443064

PATIENT
  Age: 60 Year
  Sex: Female

DRUGS (4)
  1. IBRANCE [Suspect]
     Active Substance: PALBOCICLIB
     Dosage: 100 MG CAPS - 1 CAPSULE DAILY FOR 21 DAYS AND 7 DAYS OFF
     Dates: start: 20220503
  2. LETROZOLE [Concomitant]
     Active Substance: LETROZOLE
  3. TYLENOL [Concomitant]
     Active Substance: ACETAMINOPHEN
  4. VITAMIN C [Concomitant]
     Active Substance: ASCORBIC ACID

REACTIONS (3)
  - COVID-19 [Unknown]
  - White blood cell count decreased [Unknown]
  - Fatigue [Unknown]
